FAERS Safety Report 13554923 (Version 2)
Quarter: 2017Q2

REPORT INFORMATION
  Report Type: Spontaneous
  Country: JP (occurrence: JP)
  Receive Date: 20170517
  Receipt Date: 20170616
  Transmission Date: 20170830
  Serious: Yes (Other)
  Sender: FDA-Public Use
  Company Number: JP-PFIZER INC-2017214963

PATIENT
  Age: 70 Year
  Sex: Female
  Weight: 49.4 kg

DRUGS (12)
  1. LYRICA [Suspect]
     Active Substance: PREGABALIN
     Indication: PAIN IN EXTREMITY
     Dosage: 150 MG, DAILY
     Route: 048
     Dates: start: 20140403, end: 20140403
  2. LYRICA [Suspect]
     Active Substance: PREGABALIN
     Indication: HYPOAESTHESIA
  3. MENESIT [Concomitant]
     Active Substance: CARBIDOPA\LEVODOPA
     Dosage: UNK
     Dates: start: 20140107
  4. VOLTAREN [Concomitant]
     Active Substance: DICLOFENAC SODIUM
     Dosage: 25 MG, 1X/DAY
     Dates: start: 20140131
  5. WARFARIN [Concomitant]
     Active Substance: WARFARIN
     Dosage: 25 MG, DAILY
     Dates: start: 20140121
  6. PREDNISOLONE. [Concomitant]
     Active Substance: PREDNISOLONE
     Dosage: 25 MG, ALTERNATE DAY
     Route: 048
     Dates: start: 20140107
  7. EBRANTIL /00631801/ [Concomitant]
     Active Substance: URAPIDIL
     Dosage: 15 MG, 2X/DAY
     Dates: start: 20140326
  8. TEGRETOL [Concomitant]
     Active Substance: CARBAMAZEPINE
     Dosage: UNK
     Route: 048
     Dates: start: 20140410, end: 20140414
  9. NEUROTROPIN [Concomitant]
     Active Substance: NEUROTROPIN
     Dosage: UNK
     Route: 048
     Dates: start: 20140404
  10. TRYPTANOL [Concomitant]
     Active Substance: AMITRIPTYLINE
     Dosage: 20 MG, DAILY
     Route: 048
     Dates: start: 20140131
  11. MESTINON [Concomitant]
     Active Substance: PYRIDOSTIGMINE BROMIDE
     Dosage: 60 MG, 2X/DAY
     Dates: start: 20140107
  12. COMTAN [Concomitant]
     Active Substance: ENTACAPONE
     Dosage: 100 MG, 3X/DAY
     Dates: start: 20140107

REACTIONS (3)
  - Urinary retention [Recovered/Resolved]
  - Pneumonia aspiration [Recovered/Resolved]
  - Somnolence [Recovered/Resolved]

NARRATIVE: CASE EVENT DATE: 20140403
